FAERS Safety Report 8560514-X (Version None)
Quarter: 2012Q3

REPORT INFORMATION
  Report Type: 
  Country: None (occurrence: None)
  Receive Date: 20120802
  Receipt Date: 20120723
  Transmission Date: 20120928
  Serious: Yes (Other)
  Sender: FDA-Public Use
  Company Number: JP-AMGEN-JPNSP2012046834

PATIENT
  Age: 61 Year
  Sex: Female
  Weight: 50 kg

DRUGS (6)
  1. ARANESP [Suspect]
     Indication: NEPHROGENIC ANAEMIA
     Dosage: 30 MUG, QMO
     Route: 040
     Dates: start: 20110706, end: 20110706
  2. ARANESP [Suspect]
     Dosage: 40 MUG, QMO
     Route: 040
     Dates: start: 20110829, end: 20120125
  3. EPOGIN [Concomitant]
     Dosage: UNK
  4. CONIEL [Concomitant]
     Indication: HYPERTENSION
     Dosage: 4 MG, QD
     Route: 048
     Dates: start: 20090519
  5. MIRCERA [Concomitant]
     Dosage: UNK
  6. DIOVAN [Concomitant]
     Indication: HYPERTENSION
     Dosage: 80 MG, QD
     Route: 048
     Dates: start: 20090519

REACTIONS (1)
  - CHILLS [None]
